FAERS Safety Report 24788390 (Version 1)
Quarter: 2024Q4

REPORT INFORMATION
  Report Type: Spontaneous
  Country: US (occurrence: US)
  Receive Date: 20241230
  Receipt Date: 20241230
  Transmission Date: 20250114
  Serious: No
  Sender: CSL BEHRING
  Company Number: US-Vifor (International) Inc.-VIT-2024-09920

PATIENT
  Age: 80 Year
  Sex: Female

DRUGS (2)
  1. VELTASSA [Suspect]
     Active Substance: PATIROMER
     Indication: Product used for unknown indication
     Dosage: 8.4,G,UNK
     Route: 065
     Dates: start: 202407
  2. VELTASSA [Suspect]
     Active Substance: PATIROMER
     Dosage: 8.4,G,UNK
     Route: 065
     Dates: start: 2024

REACTIONS (3)
  - Vomiting [Unknown]
  - Product physical issue [Unknown]
  - Product with quality issue administered [Unknown]

NARRATIVE: CASE EVENT DATE: 20241001
